FAERS Safety Report 12080204 (Version 1)
Quarter: 2016Q1

REPORT INFORMATION
  Report Type: Spontaneous
  Country: US (occurrence: None)
  Receive Date: 20160212
  Receipt Date: 20160212
  Transmission Date: 20160526
  Serious: No
  Sender: FDA-Public Use
  Company Number: None

PATIENT
  Age: 82 Year
  Sex: Female

DRUGS (6)
  1. INLYTA [Suspect]
     Active Substance: AXITINIB
     Indication: RENAL CANCER
     Route: 048
     Dates: start: 20150708
  2. WARFARIN [Concomitant]
     Active Substance: WARFARIN
  3. LEVORPHANOL [Concomitant]
     Active Substance: LEVORPHANOL
  4. VOTRIENT [Concomitant]
     Active Substance: PAZOPANIB HYDROCHLORIDE
  5. PROBIOTIC [Concomitant]
     Active Substance: PROBIOTICS NOS
  6. MULTI 50+ VITAMIN [Concomitant]

REACTIONS (3)
  - Fatigue [None]
  - Diarrhoea [None]
  - Drug ineffective [None]

NARRATIVE: CASE EVENT DATE: 20160201
